FAERS Safety Report 13276453 (Version 1)
Quarter: 2017Q1

REPORT INFORMATION
  Report Type: Spontaneous
  Country: JP (occurrence: JP)
  Receive Date: 20170228
  Receipt Date: 20170228
  Transmission Date: 20170428
  Serious: Yes (Life-Threatening, Other)
  Sender: FDA-Public Use
  Company Number: JP-BEH-2013037771

PATIENT
  Age: 80 Year
  Sex: Female
  Weight: 33 kg

DRUGS (3)
  1. ANTIBIOTICS [Concomitant]
     Active Substance: UNSPECIFIED INGREDIENT
     Route: 042
  2. ALBUMINAR-5 [Suspect]
     Active Substance: ALBUMIN HUMAN
     Indication: BLOOD PRESSURE DECREASED
     Dosage: 137.5 G, TOT
     Route: 042
     Dates: start: 20110624, end: 20110630
  3. MASSIVE BLOOD TRANSFUSION [Concomitant]
     Route: 042

REACTIONS (9)
  - Hyperhidrosis [Recovered/Resolved]
  - Hyperinsulinaemia [Recovered/Resolved]
  - Brain natriuretic peptide increased [Unknown]
  - Insulin autoimmune syndrome [Recovered/Resolved]
  - Hypoglycaemia [Recovered/Resolved]
  - Loss of consciousness [Recovered/Resolved]
  - Renal impairment [Unknown]
  - C-reactive protein increased [Unknown]
  - Palpitations [Recovered/Resolved]

NARRATIVE: CASE EVENT DATE: 20110729
